FAERS Safety Report 25059601 (Version 1)
Quarter: 2025Q1

REPORT INFORMATION
  Report Type: Spontaneous
  Country: US (occurrence: US)
  Receive Date: 20250310
  Receipt Date: 20250310
  Transmission Date: 20250408
  Serious: Yes (Other)
  Sender: MYLAN
  Company Number: US-MYLANLABS-2025M1017638

PATIENT
  Sex: Female

DRUGS (3)
  1. ESTRADIOL TRANSDERMAL SYSTEM [Suspect]
     Active Substance: ESTRADIOL
     Indication: Menopause
     Dosage: 0.05 MILLIGRAM, QD (PER DAY, TWICE WEEKLY)
  2. PROGESTERONE [Concomitant]
     Active Substance: PROGESTERONE
  3. METOPROLOL [Concomitant]
     Active Substance: METOPROLOL

REACTIONS (6)
  - Postmenopausal haemorrhage [Unknown]
  - Hot flush [Unknown]
  - Breast tenderness [Unknown]
  - Headache [Unknown]
  - Abdominal distension [Unknown]
  - Abdominal pain [Unknown]

NARRATIVE: CASE EVENT DATE: 20250101
